FAERS Safety Report 8621641-1 (Version None)
Quarter: 2012Q3

REPORT INFORMATION
  Report Type: 
  Country: None (occurrence: None)
  Receive Date: 20120820
  Receipt Date: 20120820
  Transmission Date: 20120928
  Serious: No
  Sender: FDA-Public Use
  Company Number: None

PATIENT
  Sex: Male
  Weight: 84.369 kg

DRUGS (1)
  1. CLOPIDOGREL [Suspect]
     Indication: MYOCARDIAL INFARCTION
     Dosage: 75 MG DAILY ORAL
     Route: 048
     Dates: start: 20120625, end: 20120629

REACTIONS (3)
  - DRUG HYPERSENSITIVITY [None]
  - RASH PRURITIC [None]
  - RASH GENERALISED [None]
